FAERS Safety Report 11378971 (Version 1)
Quarter: 2015Q3

REPORT INFORMATION
  Report Type: Spontaneous
  Country: US (occurrence: US)
  Receive Date: 20150811
  Receipt Date: 20150811
  Transmission Date: 20151125
  Serious: No
  Sender: FDA-Public Use
  Company Number: US-ELI_LILLY_AND_COMPANY-US200806003658

PATIENT
  Sex: Male

DRUGS (10)
  1. PLAVIX [Concomitant]
     Active Substance: CLOPIDOGREL BISULFATE
     Dosage: 75 MG, DAILY (1/D)
     Route: 048
  2. METOPROLOL [Concomitant]
     Active Substance: METOPROLOL
     Dosage: 25 MG, 2/D
     Route: 048
  3. TERRASTATIN [Concomitant]
     Active Substance: NYSTATIN
     Dosage: UNK, DAILY (1/D)
     Route: 048
  4. TRICOR [Concomitant]
     Active Substance: FENOFIBRATE
     Dosage: UNK, DAILY (1/D)
  5. SYNTHROID [Concomitant]
     Active Substance: LEVOTHYROXINE SODIUM
     Dosage: UNK, DAILY (1/D)
     Route: 048
  6. CIALIS [Suspect]
     Active Substance: TADALAFIL
     Dosage: 20 MG, UNK
     Route: 048
  7. STOOL SOFTENER [Concomitant]
     Active Substance: DOCUSATE CALCIUM
     Dosage: UNK, DAILY (1/D)
     Route: 048
  8. CENTRUM SILVER [Concomitant]
     Active Substance: VITAMINS
     Dosage: UNK, DAILY (1/D)
     Route: 048
  9. ASPIRIN. [Concomitant]
     Active Substance: ASPIRIN
     Dosage: UNK, DAILY (1/D)
  10. VITAMIN B [Concomitant]
     Active Substance: VITAMIN B
     Dosage: UNK, DAILY (1/D)
     Route: 048

REACTIONS (4)
  - Swollen tongue [Recovered/Resolved]
  - Stomatitis [Recovered/Resolved]
  - Lip swelling [Recovered/Resolved]
  - Oral pain [Recovered/Resolved]
